FAERS Safety Report 4879144-6 (Version None)
Quarter: 2006Q1

REPORT INFORMATION
  Report Type: 
  Country: None (occurrence: None)
  Receive Date: 20060112
  Receipt Date: 20060104
  Transmission Date: 20060701
  Serious: Yes (Other)
  Sender: FDA-Public Use
  Company Number: BR-ROCHE-430737

PATIENT
  Age: 40 Year
  Sex: Male
  Weight: 78 kg

DRUGS (3)
  1. RIVOTRIL [Suspect]
     Indication: PANIC DISORDER
     Route: 048
     Dates: start: 20040415
  2. DIAZEPAM [Concomitant]
     Dosage: ESPORADICALLY
     Route: 048
  3. INJECTIONS [Concomitant]
     Indication: HEPATITIS B
     Dates: start: 20060104, end: 20060104

REACTIONS (1)
  - BREAST MASS [None]
